FAERS Safety Report 13492307 (Version 2)
Quarter: 2017Q2

REPORT INFORMATION
  Report Type: Spontaneous
  Country: US (occurrence: US)
  Receive Date: 20170427
  Receipt Date: 20170427
  Transmission Date: 20170830
  Serious: Yes (Hospitalization)
  Sender: FDA-Public Use
  Company Number: US-JNJFOC-20170424776

PATIENT
  Age: 70 Year
  Sex: Female
  Weight: 85.28 kg

DRUGS (16)
  1. ASPIRIN. [Suspect]
     Active Substance: ASPIRIN
     Indication: PRODUCT USED FOR UNKNOWN INDICATION
     Route: 048
  2. LIPITOR [Concomitant]
     Active Substance: ATORVASTATIN CALCIUM
     Route: 048
  3. LASIX [Concomitant]
     Active Substance: FUROSEMIDE
     Route: 048
  4. XARELTO [Suspect]
     Active Substance: RIVAROXABAN
     Indication: ATRIAL FIBRILLATION
     Route: 048
     Dates: start: 2017, end: 20170331
  5. TOUJEO [Concomitant]
     Active Substance: INSULIN GLARGINE
     Dosage: DOSE: 30 UNITS
     Route: 050
  6. TRAMODOL [Concomitant]
     Active Substance: TRAMADOL
     Dosage: AS NECESSARY
     Route: 048
  7. PRILOSEC [Concomitant]
     Active Substance: OMEPRAZOLE MAGNESIUM
     Route: 048
  8. SINGULAIR [Concomitant]
     Active Substance: MONTELUKAST SODIUM
     Route: 048
  9. ASPIRIN. [Suspect]
     Active Substance: ASPIRIN
     Indication: PRODUCT USED FOR UNKNOWN INDICATION
     Route: 048
  10. FLONASE [Concomitant]
     Active Substance: FLUTICASONE PROPIONATE
     Dosage: AS NECESSARY
     Route: 065
  11. XARELTO [Suspect]
     Active Substance: RIVAROXABAN
     Indication: CEREBROVASCULAR ACCIDENT PROPHYLAXIS
     Route: 048
     Dates: start: 2017, end: 20170331
  12. MULTAQ [Concomitant]
     Active Substance: DRONEDARONE
     Route: 048
  13. AMLODIPINE [Concomitant]
     Active Substance: AMLODIPINE BESYLATE
     Route: 048
  14. NTG [Concomitant]
     Active Substance: NITROGLYCERIN
     Dosage: AS NECESSARY
     Route: 060
  15. PROVENTIL [Concomitant]
     Active Substance: ALBUTEROL
     Dosage: AS NECESSARY
     Route: 055
  16. IRON [Concomitant]
     Active Substance: IRON
     Route: 048

REACTIONS (2)
  - Rectal haemorrhage [Recovered/Resolved]
  - Myocardial ischaemia [Recovered/Resolved]

NARRATIVE: CASE EVENT DATE: 20170331
